FAERS Safety Report 6245133-2 (Version None)
Quarter: 2009Q2

REPORT INFORMATION
  Report Type: 
  Country: None (occurrence: None)
  Receive Date: 20090625
  Receipt Date: 20090619
  Transmission Date: 20091009
  Serious: Yes (Hospitalization)
  Sender: FDA-Public Use
  Company Number: FR-AVENTIS-200912280FR

PATIENT
  Age: 80 Year
  Sex: Female

DRUGS (7)
  1. BIRODOGYL [Suspect]
     Route: 048
     Dates: start: 20090106, end: 20090108
  2. DAFALGAN                           /00020001/ [Concomitant]
  3. MINISINTROM [Concomitant]
  4. DIFRAREL                           /00322801/ [Concomitant]
  5. EFFEXOR [Concomitant]
  6. NEXIUM [Concomitant]
  7. TANAKAN                            /01003103/ [Concomitant]

REACTIONS (1)
  - ABDOMINAL PAIN UPPER [None]
